FAERS Safety Report 4365451-2 (Version None)
Quarter: 2004Q2

REPORT INFORMATION
  Report Type: 
  Country: None (occurrence: None)
  Receive Date: 20040525
  Receipt Date: 20040525
  Transmission Date: 20050107
  Serious: Yes (Hospitalization)
  Sender: FDA-Public Use
  Company Number: None

PATIENT
  Age: 79 Year
  Sex: Female
  Weight: 79.5156 kg

DRUGS (10)
  1. DIOVAN [Suspect]
     Dosage: 360 MG PO DAILY
     Route: 048
     Dates: start: 20030601
  2. HYDROCHLOROTHIAZIDE [Concomitant]
  3. DITROPAN [Concomitant]
  4. DILTIAZEM [Concomitant]
  5. ASACOL [Concomitant]
  6. MIRALAX [Concomitant]
  7. HYOSCYAMINE [Concomitant]
  8. SINGULAIR [Concomitant]
  9. ADVAIR DISKUS 100/50 [Concomitant]
  10. TYLENOL W/ CODEINE NO. 3 [Concomitant]

REACTIONS (9)
  - ASTHENIA [None]
  - BRADYCARDIA [None]
  - DEHYDRATION [None]
  - FEELING HOT [None]
  - FLUID INTAKE REDUCED [None]
  - HYPERKALAEMIA [None]
  - HYPONATRAEMIA [None]
  - NODAL RHYTHM [None]
  - URINARY INCONTINENCE [None]
